FAERS Safety Report 7722277-7 (Version None)
Quarter: 2011Q3

REPORT INFORMATION
  Report Type: 
  Country: None (occurrence: None)
  Receive Date: 20110831
  Receipt Date: 20110824
  Transmission Date: 20111222
  Serious: Yes (Hospitalization)
  Sender: FDA-Public Use
  Company Number: CO-ELI_LILLY_AND_COMPANY-CO201108004342

PATIENT
  Age: 68 Year
  Sex: Female

DRUGS (10)
  1. BYETTA [Suspect]
     Dosage: 5 UG, UNK
  2. LANTUS [Concomitant]
     Dosage: 36 IU, QD
  3. LOSARTAN [Concomitant]
  4. BYETTA [Suspect]
     Indication: BLOOD GLUCOSE ABNORMAL
     Dosage: 5 UG, BID
     Dates: start: 20110610, end: 20110804
  5. BYETTA [Suspect]
     Dosage: 10 UG, UNK
     Dates: start: 20110805
  6. HYDROCHLOROTHIAZIDE [Concomitant]
  7. HUMALOG [Concomitant]
     Dosage: UNK
  8. OMEPRAZOLE [Concomitant]
  9. ASPIRIN [Concomitant]
  10. LEVOTHYROXINE SODIUM [Concomitant]

REACTIONS (4)
  - OFF LABEL USE [None]
  - WEIGHT DECREASED [None]
  - DRUG DOSE OMISSION [None]
  - HYPERGLYCAEMIA [None]
